FAERS Safety Report 24721399 (Version 1)
Quarter: 2024Q4

REPORT INFORMATION
  Report Type: Report from Study
  Country: SG (occurrence: SG)
  Receive Date: 20241211
  Receipt Date: 20241211
  Transmission Date: 20250115
  Serious: Yes (Other)
  Sender: TEVA
  Company Number: SG-TEVA-VS-3273535

PATIENT

DRUGS (1)
  1. PROPRANOLOL [Suspect]
     Active Substance: PROPRANOLOL HYDROCHLORIDE
     Indication: Haemangioma
     Route: 048

REACTIONS (2)
  - Chronic respiratory disease [Recovered/Resolved]
  - Off label use [Unknown]
